FAERS Safety Report 6106975-7 (Version None)
Quarter: 2009Q1

REPORT INFORMATION
  Report Type: 
  Country: None (occurrence: None)
  Receive Date: 20090309
  Receipt Date: 20090304
  Transmission Date: 20090719
  Serious: Yes (Hospitalization)
  Sender: FDA-Public Use
  Company Number: DE-JNJFOC-20090300819

PATIENT
  Age: 17 Year
  Sex: Male

DRUGS (1)
  1. TAVANIC [Suspect]
     Indication: ACUTE TONSILLITIS
     Route: 048

REACTIONS (2)
  - ANAPHYLACTIC SHOCK [None]
  - APHONIA [None]
